FAERS Safety Report 7101365-2 (Version None)
Quarter: 2010Q4

REPORT INFORMATION
  Report Type: 
  Country: None (occurrence: None)
  Receive Date: 20101115
  Receipt Date: 20100423
  Transmission Date: 20110411
  Serious: No
  Sender: FDA-Public Use
  Company Number: US-PFIZER INC-2010052353

PATIENT
  Age: 49 Year
  Sex: Female
  Weight: 61.224 kg

DRUGS (1)
  1. METHYLPREDNISOLONE [Suspect]
     Indication: SWELLING
     Dosage: UNK

REACTIONS (2)
  - SWELLING [None]
  - WEIGHT INCREASED [None]
